FAERS Safety Report 7997116-X (Version None)
Quarter: 2011Q4

REPORT INFORMATION
  Report Type: 
  Country: None (occurrence: None)
  Receive Date: 20111221
  Receipt Date: 20111218
  Transmission Date: 20120403
  Serious: No
  Sender: FDA-Public Use
  Company Number: US-TEVA-314329USA

PATIENT
  Sex: Female

DRUGS (2)
  1. PLAN B ONE-STEP [Suspect]
     Indication: POST COITAL CONTRACEPTION
     Dosage: 1.5 MILLIGRAM;
     Route: 048
  2. EMERGENCY CONTRACEPTIVE MEDICATION [Suspect]
     Indication: POST COITAL CONTRACEPTION

REACTIONS (2)
  - MENSTRUATION DELAYED [None]
  - PELVIC PAIN [None]
